FAERS Safety Report 9319542 (Version 1)
Quarter: 2013Q2

REPORT INFORMATION
  Report Type: Spontaneous
  Country: US (occurrence: US)
  Receive Date: 20130530
  Receipt Date: 20130530
  Transmission Date: 20140414
  Serious: Yes (Other)
  Sender: FDA-Public Use
  Company Number: US-GLAXOSMITHKLINE-A1000285A

PATIENT
  Age: 39 Year
  Sex: Female

DRUGS (12)
  1. FLOLAN [Suspect]
     Indication: PRODUCT USED FOR UNKNOWN INDICATION
     Dosage: 47.2NGKM CONTINUOUS
     Route: 042
     Dates: start: 20070416
  2. LASIX [Concomitant]
  3. SPIRONOLACTONE [Concomitant]
  4. TIAZAC [Concomitant]
  5. K-DUR [Concomitant]
  6. COUMADIN [Concomitant]
  7. FERROUS SULFATE [Concomitant]
  8. ALLEGRA [Concomitant]
  9. ADCIRCA [Concomitant]
  10. TRACLEER [Concomitant]
  11. IMODIUM [Concomitant]
  12. TYLENOL [Concomitant]

REACTIONS (2)
  - Catheter site infection [Unknown]
  - Medical device complication [Unknown]
